FAERS Safety Report 5086595-6 (Version None)
Quarter: 2006Q3

REPORT INFORMATION
  Report Type: 
  Country: None (occurrence: None)
  Receive Date: 20060823
  Receipt Date: 20060821
  Transmission Date: 20061208
  Serious: Yes (Life-Threatening)
  Sender: FDA-Public Use
  Company Number: FR-GLAXOSMITHKLINE-B0435025A

PATIENT
  Age: 63 Year
  Sex: Female

DRUGS (2)
  1. AMOXICILLIN [Suspect]
     Dosage: 2TAB SINGLE DOSE
     Route: 048
     Dates: start: 20051001, end: 20051001
  2. VENTOLIN [Concomitant]
     Indication: ASTHMA
     Route: 065

REACTIONS (6)
  - ANAPHYLACTIC REACTION [None]
  - DIARRHOEA [None]
  - DRUG HYPERSENSITIVITY [None]
  - DYSPNOEA [None]
  - URTICARIA GENERALISED [None]
  - VOMITING [None]
